FAERS Safety Report 4761756-1 (Version None)
Quarter: 2005Q3

REPORT INFORMATION
  Report Type: 
  Country: None (occurrence: None)
  Receive Date: 20050906
  Receipt Date: 20041228
  Transmission Date: 20060218
  Serious: Yes (Hospitalization)
  Sender: FDA-Public Use
  Company Number: PHHO2004AR18531

PATIENT
  Age: 61 Year
  Sex: Male
  Weight: 87 kg

DRUGS (4)
  1. NEORAL [Suspect]
     Indication: LIVER TRANSPLANT
     Dosage: 150 MG / DAY
     Route: 048
     Dates: start: 20010528, end: 20040211
  2. NEORAL [Suspect]
     Dosage: 100 MG / DAY
     Route: 048
     Dates: start: 20040301, end: 20040301
  3. PREDNISONE [Concomitant]
     Indication: LIVER TRANSPLANT
     Dosage: 4 MG / DAY
     Route: 048
     Dates: start: 20010528
  4. LAMIVUDINE [Concomitant]
     Indication: HEPATITIS B
     Dates: start: 20021014

REACTIONS (6)
  - BILE DUCT STENOSIS [None]
  - BILIARY ANASTOMOSIS [None]
  - BLOOD CREATININE INCREASED [None]
  - CHOLANGITIS [None]
  - RENAL FAILURE ACUTE [None]
  - SEPSIS [None]
